FAERS Safety Report 4540844-9 (Version None)
Quarter: 2004Q4

REPORT INFORMATION
  Report Type: 
  Country: None (occurrence: None)
  Receive Date: 20041228
  Receipt Date: 20041210
  Transmission Date: 20050328
  Serious: Yes (Other)
  Sender: FDA-Public Use
  Company Number: 2004215676ES

PATIENT
  Age: 52 Year
  Sex: Female
  Weight: 69.99 kg

DRUGS (3)
  1. XALATAN [Suspect]
     Indication: OCULAR HYPERTENSION
     Dosage: 0.005% ONE DROP DAILY (1 GTT ONCE A DAY), OPHTHALMIC
     Route: 047
     Dates: start: 20030606, end: 20040501
  2. DEFLAZACORT (DEFLAZACORT) [Concomitant]
  3. AZATHIOPRINE [Concomitant]

REACTIONS (3)
  - BLINDNESS UNILATERAL [None]
  - DETACHMENT OF RETINAL PIGMENT EPITHELIUM [None]
  - VISUAL ACUITY REDUCED [None]
